FAERS Safety Report 8016096-4 (Version None)
Quarter: 2011Q4

REPORT INFORMATION
  Report Type: 
  Country: None (occurrence: None)
  Receive Date: 20111230
  Receipt Date: 20111228
  Transmission Date: 20120403
  Serious: Yes (Death, Hospitalization)
  Sender: FDA-Public Use
  Company Number: US-BRISTOL-MYERS SQUIBB COMPANY-16267361

PATIENT
  Age: 51 Year
  Sex: Male
  Weight: 60 kg

DRUGS (49)
  1. SENNA [Concomitant]
     Indication: CONSTIPATION
     Route: 048
  2. ZOFRAN [Concomitant]
     Indication: NAUSEA
     Dosage: 1DF: 1 TAB 8MG  EVERY 8HRS ALSO TAKEN 4MG IV Q6PRN, 8MG IV Q8PRN,
     Route: 048
     Dates: end: 20111128
  3. CLINDAMYCIN [Concomitant]
     Indication: RASH
     Dosage: FORMULATION: GEL: APPLY
  4. DENOSUMAB [Concomitant]
     Indication: METASTASES TO BONE
     Dosage: UNDER SKIN MONTHLY LAST MONTH?
     Route: 058
  5. MS CONTIN [Concomitant]
     Indication: PAIN
     Dosage: EXTENDED RELEASE ALSO IMMEDIATE RELEASE 15MG,1/2-1 TABS PO EVERY 4 HRS AS NEEDED
     Route: 048
  6. COLOXYL + SENNA [Concomitant]
     Dosage: 1DF:3 TABS.
     Route: 048
  7. BENAZEPRIL HCL + HCTZ [Concomitant]
     Indication: BLOOD PRESSURE
     Dosage: 20/12.5MG 1 TAB
     Route: 048
     Dates: end: 20111129
  8. CALCIUM ACETATE [Concomitant]
     Indication: SUPPLEMENTATION THERAPY
     Dosage: 1DF:1TAB UNK MG
     Route: 048
  9. ZOFRAN [Concomitant]
     Dosage: 8 HRS:1 TABS
     Route: 048
  10. SENNOSIDE [Concomitant]
     Indication: CONSTIPATION
     Dosage: 1DF:3 TABS BID
     Route: 048
  11. NALOXONE [Concomitant]
     Route: 042
  12. XOPENEX [Concomitant]
     Indication: DYSPNOEA
     Dosage: Q6HRS
     Route: 055
  13. ASPIRIN [Concomitant]
     Dosage: 1 TABS
     Route: 048
     Dates: end: 20111128
  14. SENOKOT [Concomitant]
     Indication: CONSTIPATION
     Dosage: 1DF:3 TABS BID 8.6/50MG
     Route: 048
  15. ERLOTINIB HYDROCHLORIDE [Suspect]
     Indication: NON-SMALL CELL LUNG CANCER
     Dosage: LAST DOSE:30NOV11.LOT 8686801,9871702,9871702,0953101.
     Route: 048
     Dates: start: 20110514
  16. AMBIEN [Concomitant]
     Dosage: FORMULATION: 1-2 TABS
     Route: 048
     Dates: end: 20111128
  17. METHYLPREDNISOLONE SODIUM SUCCINATE [Concomitant]
     Dosage: SHORT INFUSION EVERY 8HRS.
     Route: 042
  18. METOCLOPRAMIDE [Concomitant]
     Dosage: Q4PRN SHORT INF
  19. ZOFRAN [Concomitant]
     Indication: VOMITING
     Dosage: 1DF: 1 TAB 8MG  EVERY 8HRS ALSO TAKEN 4MG IV Q6PRN, 8MG IV Q8PRN,
     Route: 048
     Dates: end: 20111128
  20. PROTONIX [Concomitant]
     Dosage: ORAL
     Route: 042
  21. COMPAZINE [Concomitant]
     Indication: NAUSEA
     Dosage: 1DF:10MG 1TAB EVERY 6 HRS.
     Route: 048
  22. FOLIC ACID [Concomitant]
     Indication: SUPPLEMENTATION THERAPY
     Dosage: 1 TAB
     Route: 048
     Dates: end: 20111129
  23. LEVOFLOXACIN [Concomitant]
     Indication: PNEUMONIA
     Dosage: 1 TAB 500MG.
     Route: 048
  24. ATIVAN [Concomitant]
     Indication: ANXIETY
     Dosage: AS NECESSARY:TABS
     Route: 048
  25. METHOCARBAMOL [Concomitant]
     Indication: MUSCLE SPASMS
     Dosage: 1DF:1 TAB 500MG. EVERY 8 HRS
     Route: 048
  26. TESSALON [Concomitant]
     Indication: COUGH
     Dosage: 1 CAPS
     Route: 048
  27. CEFEPIME [Concomitant]
     Dosage: EVERY HR
     Route: 042
  28. LOVENOX [Concomitant]
     Indication: THROMBOSIS
     Dosage: RTE:UNDER SKIN,EVERY12HRS
     Route: 058
  29. AMBIEN [Concomitant]
     Indication: SLEEP DISORDER
     Dosage: 1DF:1-2 TABS OF 5MG AT BEDTIME
     Route: 048
  30. HYDROCODONE BITARTRATE [Concomitant]
     Indication: PAIN
     Dosage: 1DF:5/500MG 1TAB EVERY 6HRS
     Route: 048
  31. ATROVENT [Concomitant]
     Indication: DYSPNOEA
     Dosage: Q6HRS .5MG:EVERY 6 HRS:VIA NEBULIZER
     Route: 055
  32. GUAIFENESIN AND DEXTROMETHORPHAN HBR [Concomitant]
     Dosage: EVERY 6HRS
     Route: 048
  33. GLUCOSAMINE [Concomitant]
     Indication: SUPPLEMENTATION THERAPY
     Dosage: 2CAPS UNKMG FEW DAYS
     Route: 048
  34. CODEINE + GUAIFENESIN [Concomitant]
     Indication: COUGH
     Dosage: 1DF: 1TABLESPOON EVERY 6 HRS
     Route: 048
     Dates: end: 20111128
  35. ACETAMINOPHEN AND HYDROCODONE BITARTRATE [Concomitant]
     Indication: PAIN
     Dosage: 1DF:1 TAB Q6HPRN
     Route: 048
  36. CERUMENEX [Concomitant]
     Indication: CERUMEN IMPACTION
     Dosage: OTIC
  37. FISH OIL [Concomitant]
     Route: 048
  38. AZITHROMYCIN [Concomitant]
     Route: 042
  39. SODIUM CHLORIDE [Concomitant]
     Dosage: ALSO TAKEN: ROUTE:Q8PRN,10ML,10ML ONCE DAY 10ML IV, 10MLQ4PRN
     Route: 042
  40. MORPHINE [Concomitant]
     Dosage: ROUTE:UD.
     Route: 042
  41. COMPAZINE [Concomitant]
     Indication: VOMITING
     Dosage: 1DF:10MG 1TAB EVERY 6 HRS.
     Route: 048
  42. IBUPROFEN (ADVIL) [Concomitant]
     Indication: MUSCULOSKELETAL STIFFNESS
     Dosage: 1 TAB 200MG EVERY 6HRS FEW DAYS AGO
     Route: 048
  43. LOVASTATIN [Concomitant]
     Indication: BLOOD CHOLESTEROL
     Dosage: 1 TAB 20MG AT BEDTIME.
     Route: 048
     Dates: end: 20111129
  44. PREDNISONE TAB [Concomitant]
     Dosage: 20MG TA[ERING DOSE 1DF:2 TABS FOR 2 WKS THEN 1 AND 1/2 TABS DAILY FOR 2 WKS
     Dates: start: 20111210
  45. DASATINIB [Suspect]
     Indication: NON-SMALL CELL LUNG CANCER
     Dosage: LAST DOSE:29NOV11. ALSO TAKEN 20MG LOT#9K51593,OK59542,1G67348 50MG LOT#OF63547,1A71387. 50MG/20MG
     Route: 048
     Dates: start: 20110514, end: 20111129
  46. VANCOMYCIN HCL [Concomitant]
     Route: 042
  47. MULTI-VITAMIN [Concomitant]
     Indication: SUPPLEMENTATION THERAPY
     Dosage: 1DF:1 TABS UNK MG
     Route: 048
  48. NASONEX [Concomitant]
     Indication: HYPERSENSITIVITY
     Dosage: 1DF:2PUFF ALSO TAKEN 2SPRAY TWICE DAILY PRN.
     Route: 045
     Dates: end: 20111128
  49. LOVAZA [Concomitant]
     Indication: SUPPLEMENTATION THERAPY
     Dosage: FEW DAYS GO
     Route: 048

REACTIONS (6)
  - DEEP VEIN THROMBOSIS [None]
  - NEOPLASM MALIGNANT [None]
  - PULMONARY HYPERTENSION [None]
  - HYPOXIA [None]
  - DYSPNOEA [None]
  - PULMONARY EMBOLISM [None]
